FAERS Safety Report 9749848 (Version 1)
Quarter: 2013Q4

REPORT INFORMATION
  Report Type: Spontaneous
  Country: GB (occurrence: GB)
  Receive Date: 20131212
  Receipt Date: 20131212
  Transmission Date: 20140711
  Serious: Yes (Life-Threatening, Hospitalization, Other)
  Sender: FDA-Public Use
  Company Number: GB-TEVA-450005ISR

PATIENT
  Age: 67 Year
  Sex: Female

DRUGS (6)
  1. WARFARIN [Suspect]
     Indication: ATRIAL FIBRILLATION
     Dosage: AS PER INR
     Route: 048
  2. LANSOPRAZOLE [Interacting]
     Indication: GASTROINTESTINAL DISORDER
     Dosage: 30 MILLIGRAM DAILY;
     Route: 048
     Dates: start: 20131115
  3. SIMVASTATIN [Concomitant]
     Dosage: 20 MILLIGRAM DAILY; AT NIGHT
  4. VERAPAMIL [Concomitant]
     Dosage: 120 MILLIGRAM DAILY; IN THE MORNING
  5. ALENDRONIC ACID [Concomitant]
  6. ADCAL-D3 [Concomitant]

REACTIONS (2)
  - International normalised ratio increased [Not Recovered/Not Resolved]
  - Drug interaction [Unknown]
